FAERS Safety Report 14149252 (Version 1)
Quarter: 2017Q4

REPORT INFORMATION
  Report Type: Spontaneous
  Country: US (occurrence: US)
  Receive Date: 20171101
  Receipt Date: 20171101
  Transmission Date: 20180321
  Serious: No
  Sender: FDA-Public Use
  Company Number: US-BAYER-2017-204866

PATIENT
  Sex: Female

DRUGS (1)
  1. SAFYRAL [Suspect]
     Active Substance: DROSPIRENONE\ETHINYL ESTRADIOL\LEVOMEFOLATE CALCIUM
     Indication: ACNE
     Route: 048

REACTIONS (1)
  - Drug ineffective [None]
